FAERS Safety Report 25131092 (Version 1)
Quarter: 2025Q1

REPORT INFORMATION
  Report Type: Spontaneous
  Country: CN (occurrence: CN)
  Receive Date: 20250327
  Receipt Date: 20250327
  Transmission Date: 20250409
  Serious: Yes (Hospitalization)
  Sender: ESTEVE
  Company Number: CN-Esteve Pharmaceuticals SA-2173762

PATIENT
  Age: 49 Year
  Sex: Male
  Weight: 57 kg

DRUGS (2)
  1. LYSODREN [Suspect]
     Active Substance: MITOTANE
  2. LYSODREN [Suspect]
     Active Substance: MITOTANE
     Dates: start: 20250308

REACTIONS (4)
  - Rash [Not Recovered/Not Resolved]
  - Pyrexia [Unknown]
  - Nasopharyngitis [Unknown]
  - Mouth ulceration [Unknown]

NARRATIVE: CASE EVENT DATE: 20250315
